FAERS Safety Report 9203099 (Version 1)
Quarter: 2013Q2

REPORT INFORMATION
  Report Type: Spontaneous
  Country: IT (occurrence: IT)
  Receive Date: 20130402
  Receipt Date: 20130402
  Transmission Date: 20140414
  Serious: Yes (Hospitalization)
  Sender: FDA-Public Use
  Company Number: IT-MERCK-1303ITA014242

PATIENT
  Age: 43 Year
  Sex: Female

DRUGS (6)
  1. PEGINTRON [Suspect]
     Indication: HEPATITIS B
     Dosage: UNK, QW
     Route: 058
     Dates: start: 20121215, end: 20130310
  2. PEGINTRON [Suspect]
     Dosage: UNK, QW
     Route: 058
     Dates: start: 20130317, end: 20130325
  3. REBETOL [Suspect]
     Indication: HEPATITIS B
     Dosage: UNK, QD
     Route: 058
     Dates: start: 20121215, end: 20130310
  4. REBETOL [Suspect]
     Dosage: UNK, QD
     Dates: start: 20130311, end: 20130325
  5. VITAMIN B COMPLEX [Concomitant]
  6. PHOSPHOLIPIDS (UNSPECIFIED) (+) VITAMINS (UNSPECIFIED) [Concomitant]

REACTIONS (4)
  - Deafness [Recovering/Resolving]
  - Vertigo [Recovering/Resolving]
  - Aphthous stomatitis [Recovering/Resolving]
  - Erythrodermic psoriasis [Recovering/Resolving]
